FAERS Safety Report 8607821-X (Version None)
Quarter: 2012Q3

REPORT INFORMATION
  Report Type: 
  Country: None (occurrence: None)
  Receive Date: 20120821
  Receipt Date: 20120810
  Transmission Date: 20120928
  Serious: Yes (Hospitalization)
  Sender: FDA-Public Use
  Company Number: AU-JNJFOC-20120808896

PATIENT
  Age: 85 Year
  Sex: Male

DRUGS (2)
  1. QUETIAPINE [Suspect]
     Indication: PAIN
     Route: 065
     Dates: start: 20110101
  2. TRAMADOL HCL [Suspect]
     Indication: PRODUCT USED FOR UNKNOWN INDICATION
     Route: 065
     Dates: start: 20120315, end: 20120415

REACTIONS (5)
  - ANXIETY [None]
  - AGITATION [None]
  - CIRCULATORY COLLAPSE [None]
  - HALLUCINATION, VISUAL [None]
  - DELUSION [None]
